FAERS Safety Report 9201293 (Version 3)
Quarter: 2013Q3

REPORT INFORMATION
  Report Type: Spontaneous
  Country: FR (occurrence: FR)
  Receive Date: 20130401
  Receipt Date: 20130711
  Transmission Date: 20140515
  Serious: Yes (Hospitalization, Other)
  Sender: FDA-Public Use
  Company Number: PHHY2013FR031126

PATIENT
  Sex: Male

DRUGS (3)
  1. EXFORGE [Suspect]
     Indication: HYPERTENSION
     Dosage: 1 DF, QD
     Route: 048
     Dates: start: 20090129, end: 20130429
  2. DOLIPRANE [Concomitant]
     Indication: OSTEOARTHRITIS
     Dosage: 1 G, PRN
     Route: 048
  3. METEOSPASMYL [Concomitant]
     Indication: ABDOMINAL PAIN
     Dosage: UNK UKN, PRN
     Route: 048

REACTIONS (2)
  - Thrombocytopenic purpura [Recovered/Resolved]
  - Platelet count decreased [Recovering/Resolving]
